FAERS Safety Report 6256863-0 (Version None)
Quarter: 2009Q3

REPORT INFORMATION
  Report Type: 
  Country: None (occurrence: None)
  Receive Date: 20090706
  Receipt Date: 20090625
  Transmission Date: 20100115
  Serious: Yes (Hospitalization)
  Sender: FDA-Public Use
  Company Number: PHHY2009ZA24358

PATIENT
  Sex: Male

DRUGS (13)
  1. ZOMETA [Suspect]
     Indication: HYPERCALCAEMIA OF MALIGNANCY
     Dosage: 4 MG, UNK
     Route: 042
     Dates: start: 20090611
  2. LIPITOR [Concomitant]
     Dosage: 10MG/DAY
  3. PLENISH-K [Concomitant]
     Dosage: 1 DF/DAY
  4. ZILDEM [Concomitant]
     Dosage: 180 MG/DAY
  5. BUDESONIDE [Concomitant]
     Dosage: 2 INHALATIONS BID
  6. OMEPRAZOLE [Concomitant]
     Dosage: 20MG/DAY
  7. LYRICA [Concomitant]
     Dosage: 150 MG NOCTURNAL
  8. PURICOS [Concomitant]
     Dosage: 300 MG/DAY
  9. FORTZAAR [Concomitant]
  10. CALCIFEROL [Concomitant]
     Dosage: 50000 IU PER WEEK
  11. AVODART [Concomitant]
     Dosage: 0.5 MG/DAY
  12. ZINNAT [Concomitant]
     Dosage: 500 MG, BID
     Route: 048
  13. SYNAP FORTE [Concomitant]
     Indication: PAIN
     Dosage: 2 TABLETS 6-8 HOURLY

REACTIONS (7)
  - ATRIAL FIBRILLATION [None]
  - C-REACTIVE PROTEIN INCREASED [None]
  - HYPOCALCAEMIA [None]
  - PNEUMONIA [None]
  - PYREXIA [None]
  - SEPSIS [None]
  - SURGERY [None]
